FAERS Safety Report 8258227-7 (Version None)
Quarter: 2012Q2

REPORT INFORMATION
  Report Type: 
  Country: None (occurrence: None)
  Receive Date: 20120404
  Receipt Date: 20120401
  Transmission Date: 20120825
  Serious: Yes (Death)
  Sender: FDA-Public Use
  Company Number: PHHY2012MX027926

PATIENT
  Sex: Male

DRUGS (9)
  1. ENEDITRON [Concomitant]
     Dosage: 2 DF, QD
     Dates: start: 20100101
  2. DIACEREIN [Concomitant]
     Dosage: 1 DF, QD
     Dates: start: 20080101, end: 20120101
  3. LANSOPRAZOLE [Concomitant]
     Dosage: 1 DF, QD
     Dates: start: 20111001, end: 20120101
  4. CONTUMAX [Concomitant]
     Dosage: 1 DF, QD
     Dates: start: 20100101, end: 20120101
  5. CINITAPRIDE [Concomitant]
     Dosage: 9 DF, QD
     Dates: start: 20080101, end: 20120101
  6. EXELON [Suspect]
     Indication: DEMENTIA ALZHEIMER'S TYPE
     Dosage: 5CM2/ 4.6 MG PATCH DAILY
     Route: 062
     Dates: end: 20120101
  7. ASLIT [Concomitant]
     Dosage: 1 DF, QD
     Dates: start: 20110401, end: 20120101
  8. MADOPASH [Concomitant]
     Dosage: 1.25 DF, QD
     Dates: start: 20060101, end: 20120101
  9. CALCORT [Concomitant]
     Dosage: 1 DF, QD
     Dates: start: 20090101, end: 20120101

REACTIONS (1)
  - ASPHYXIA [None]
